FAERS Safety Report 11273706 (Version 1)
Quarter: 2015Q3

REPORT INFORMATION
  Report Type: Spontaneous
  Country: US (occurrence: US)
  Receive Date: 20150715
  Receipt Date: 20150715
  Transmission Date: 20151125
  Serious: No
  Sender: FDA-Public Use
  Company Number: US-ENDO PHARMACEUTICALS INC.-201412149

PATIENT
  Age: 72 Year
  Sex: Male
  Weight: 87.17 kg

DRUGS (6)
  1. EDEX [Suspect]
     Active Substance: ALPROSTADIL
     Dates: start: 201311
  2. GLIMEPIRIDE. [Concomitant]
     Active Substance: GLIMEPIRIDE
  3. EDEX [Suspect]
     Active Substance: ALPROSTADIL
     Dates: start: 2013, end: 201311
  4. HUMULIN NOS [Concomitant]
     Active Substance: INSULIN HUMAN
  5. GLUCOPHAGE [Concomitant]
     Active Substance: METFORMIN HYDROCHLORIDE
  6. PIOGLITAZONE. [Concomitant]
     Active Substance: PIOGLITAZONE

REACTIONS (1)
  - Drug ineffective [Not Recovered/Not Resolved]

NARRATIVE: CASE EVENT DATE: 201311
